FAERS Safety Report 7247647-5 (Version None)
Quarter: 2011Q1

REPORT INFORMATION
  Report Type: 
  Country: None (occurrence: None)
  Receive Date: 20110127
  Receipt Date: 20110118
  Transmission Date: 20110831
  Serious: Yes (Other)
  Sender: FDA-Public Use
  Company Number: CA-JNJFOC-20110105347

PATIENT
  Sex: Male
  Weight: 91.1 kg

DRUGS (2)
  1. REMICADE [Suspect]
     Indication: CROHN'S DISEASE
     Route: 042
  2. PREDNISONE [Concomitant]

REACTIONS (4)
  - WEIGHT DECREASED [None]
  - DIARRHOEA [None]
  - DECREASED APPETITE [None]
  - ABDOMINAL PAIN [None]
